FAERS Safety Report 9790059 (Version 1)
Quarter: 2013Q4

REPORT INFORMATION
  Report Type: Spontaneous
  Country: US (occurrence: None)
  Receive Date: 20131230
  Receipt Date: 20131230
  Transmission Date: 20140711
  Serious: Yes (Hospitalization)
  Sender: FDA-Public Use
  Company Number: None

PATIENT
  Age: 82 Year
  Sex: Female
  Weight: 58.2 kg

DRUGS (1)
  1. DILTIAZEM XR [Suspect]
     Indication: ATRIAL FIBRILLATION
     Route: 048
     Dates: start: 20131209, end: 20131210

REACTIONS (1)
  - Heart rate abnormal [None]
